FAERS Safety Report 5323782-3 (Version None)
Quarter: 2007Q2

REPORT INFORMATION
  Report Type: 
  Country: None (occurrence: None)
  Receive Date: 20070514
  Receipt Date: 20070503
  Transmission Date: 20071010
  Serious: Yes (Life-Threatening)
  Sender: FDA-Public Use
  Company Number: IT-AVENTIS-200712175EU

PATIENT
  Age: 83 Year
  Sex: Female

DRUGS (8)
  1. LASIX [Suspect]
     Indication: MYOCARDIAL INFARCTION
     Route: 048
     Dates: start: 20070228, end: 20070426
  2. UNIPRIL                            /00885601/ [Suspect]
     Indication: MYOCARDIAL INFARCTION
     Route: 048
     Dates: start: 20070228, end: 20070426
  3. LUVION                             /00252501/ [Suspect]
     Indication: MYOCARDIAL INFARCTION
     Route: 048
     Dates: start: 20070201, end: 20070426
  4. DELTACORTENE [Concomitant]
     Indication: MYOCARDIAL ISCHAEMIA
     Route: 048
     Dates: start: 20070228, end: 20070426
  5. ANTRA                              /00661201/ [Concomitant]
     Indication: HYPERCHLORHYDRIA
     Route: 048
     Dates: start: 20070228, end: 20070426
  6. INDOBUFENE [Concomitant]
     Indication: MYOCARDIAL ISCHAEMIA
     Route: 048
     Dates: start: 20070228, end: 20070426
  7. LANOXIN [Concomitant]
     Indication: MYOCARDIAL ISCHAEMIA
     Route: 048
     Dates: start: 20070228, end: 20070426
  8. CONGESCOR [Concomitant]
     Indication: MYOCARDIAL ISCHAEMIA
     Route: 048
     Dates: start: 20070228, end: 20070426

REACTIONS (9)
  - BASE EXCESS [None]
  - BLOOD POTASSIUM INCREASED [None]
  - BRADYCARDIA [None]
  - DEPRESSION [None]
  - DRUG INTERACTION [None]
  - HYPOVOLAEMIC SHOCK [None]
  - METABOLIC ACIDOSIS [None]
  - RENAL FAILURE ACUTE [None]
  - THERAPEUTIC AGENT TOXICITY [None]
